FAERS Safety Report 3867469 (Version 12)
Quarter: 2018Q2

REPORT INFORMATION
  Report Type: Spontaneous
  Country: JP (occurrence: JP)
  Receive Date: 20021108
  Receipt Date: 20180416
  Transmission Date: 20180711
  Serious: Yes (Life-Threatening, Hospitalization, Other)
  Sender: FDA-Public Use
  Company Number: PHBS2002JP13343

PATIENT
  Age: 82 Year
  Sex: Male
  Weight: 52 kg

DRUGS (6)
  1. GLIVEC [Suspect]
     Active Substance: IMATINIB MESYLATE
     Dosage: 200 MG/D
     Route: 048
     Dates: start: 20021210
  2. GLIVEC [Suspect]
     Active Substance: IMATINIB MESYLATE
     Indication: GASTROINTESTINAL STROMAL TUMOUR
     Dosage: 100 MG, TID
     Route: 048
     Dates: start: 20020924, end: 20021101
  3. GLIVEC [Suspect]
     Active Substance: IMATINIB MESYLATE
     Dosage: 200 MG, UNK
     Route: 048
     Dates: start: 20021210
  4. GLIVEC [Suspect]
     Active Substance: IMATINIB MESYLATE
     Dosage: 200 MG/D
     Route: 048
     Dates: start: 20021118, end: 20021204
  5. GLIVEC [Suspect]
     Active Substance: IMATINIB MESYLATE
     Dosage: 200 MG, UNK
     Route: 048
     Dates: start: 20021118, end: 20021204
  6. LAXOBERON [Concomitant]
     Active Substance: SODIUM PICOSULFATE
     Indication: PRODUCT USED FOR UNKNOWN INDICATION
     Route: 065

REACTIONS (17)
  - Lung infiltration [Recovered/Resolved]
  - Hypersensitivity [Recovered/Resolved]
  - Hypoxia [Recovered/Resolved]
  - Dyspnoea exertional [Recovered/Resolved]
  - C-reactive protein increased [Recovered/Resolved]
  - Renal tubular disorder [Unknown]
  - Haematuria [Unknown]
  - Mechanical ventilation [Recovered/Resolved]
  - Renal impairment [Unknown]
  - Cell marker increased [Recovered/Resolved]
  - Cough [Recovered/Resolved]
  - Pleural effusion [Recovered/Resolved]
  - Pyrexia [Recovered/Resolved]
  - Interstitial lung disease [Recovered/Resolved]
  - Dyspnoea [Recovered/Resolved]
  - Blood lactate dehydrogenase increased [Recovered/Resolved]
  - Beta-N-acetyl-D-glucosaminidase increased [Unknown]

NARRATIVE: CASE EVENT DATE: 200210
